FAERS Safety Report 7797560-X (Version None)
Quarter: 2011Q4

REPORT INFORMATION
  Report Type: 
  Country: None (occurrence: None)
  Receive Date: 20111005
  Receipt Date: 20110926
  Transmission Date: 20120403
  Serious: Yes (Disabling)
  Sender: FDA-Public Use
  Company Number: US-VERTEX PHARMACEUTICALS INC.-AE-2011-000397

PATIENT
  Sex: Male
  Weight: 75.364 kg

DRUGS (11)
  1. BISMUTH SUBSALICYLATE [Concomitant]
     Indication: DIARRHOEA
     Route: 048
  2. M.V.I. [Concomitant]
     Indication: MEDICAL DIET
  3. SERTRALINE HYDROCHLORIDE [Concomitant]
     Dates: start: 20110518
  4. PEGINTERFERON ALFA-2A [Suspect]
     Indication: HEPATITIS C
     Route: 058
     Dates: start: 20110504
  5. ONDANSETRON [Concomitant]
     Indication: NAUSEA
     Dates: start: 20110506
  6. RIBAVIRIN [Suspect]
     Dates: start: 20110621
  7. B VITAMIN COMPLEX [Concomitant]
     Indication: NUTRITIONAL SUPPORT
  8. RIBAVIRIN [Suspect]
     Indication: HEPATITIS C
     Dates: start: 20110504, end: 20110620
  9. TYLENOL-500 [Concomitant]
     Indication: HEADACHE
  10. LOVAZA [Concomitant]
     Indication: NUTRITIONAL SUPPORT
  11. VX-950 [Suspect]
     Indication: HEPATITIS C
     Route: 048
     Dates: start: 20110504, end: 20110630

REACTIONS (2)
  - FATIGUE [None]
  - ANAEMIA [None]
